FAERS Safety Report 4328385-5 (Version None)
Quarter: 2004Q1

REPORT INFORMATION
  Report Type: 
  Country: None (occurrence: None)
  Receive Date: 20040325
  Receipt Date: 20040107
  Transmission Date: 20041129
  Serious: Yes (Hospitalization)
  Sender: FDA-Public Use
  Company Number: USA-2004-0012465

PATIENT
  Sex: Male

DRUGS (1)
  1. SPECTRACEF TABLETS 200MG (CEFDITOREN PIVOXIL) [Suspect]
     Indication: SKIN INFECTION
     Dosage: 200 MG, BID,  ORAL
     Route: 048

REACTIONS (2)
  - BACTERIA STOOL IDENTIFIED [None]
  - DIARRHOEA [None]
